FAERS Safety Report 23957395 (Version 2)
Quarter: 2024Q2

REPORT INFORMATION
  Report Type: Spontaneous
  Country: CN (occurrence: CN)
  Receive Date: 20240610
  Receipt Date: 20240613
  Transmission Date: 20240716
  Serious: Yes (Other)
  Sender: FDA-Public Use
  Company Number: CN-009507513-2406CHN001470

PATIENT
  Age: 88 Year
  Sex: Male
  Weight: 60 kg

DRUGS (2)
  1. CILASTATIN SODIUM\IMIPENEM [Suspect]
     Active Substance: CILASTATIN SODIUM\IMIPENEM
     Indication: Sepsis
     Dosage: 1 GRAM, Q8H
     Route: 042
     Dates: start: 20240515, end: 20240522
  2. SODIUM CHLORIDE [Concomitant]
     Active Substance: SODIUM CHLORIDE
     Indication: Medication dilution
     Dosage: 100 ML, Q8H
     Route: 041
     Dates: start: 20240515, end: 20240522

REACTIONS (3)
  - Epilepsy [Recovering/Resolving]
  - Cerebral haemorrhage [Unknown]
  - Surgery [Unknown]

NARRATIVE: CASE EVENT DATE: 20240522
